FAERS Safety Report 9068588 (Version 6)
Quarter: 2013Q4

REPORT INFORMATION
  Report Type: Report from Study
  Country: JP (occurrence: JP)
  Receive Date: 20130206
  Receipt Date: 20131127
  Transmission Date: 20140711
  Serious: Yes (Hospitalization)
  Sender: FDA-Public Use
  Company Number: JP-009507513-1302JPN001490

PATIENT
  Age: 85 Year
  Sex: Male

DRUGS (9)
  1. ZOLINZA CAPSULES 100MG [Suspect]
     Indication: MYCOSIS FUNGOIDES
     Dosage: 300 MG, QD
     Route: 048
     Dates: start: 20120112, end: 20120122
  2. ZOLINZA CAPSULES 100MG [Suspect]
     Dosage: 5-DAY DOSING, 2 DAYS OFF THERAPY, (200 MG,QD)
     Route: 048
     Dates: start: 20120201, end: 20120207
  3. ZOLINZA CAPSULES 100MG [Suspect]
     Dosage: 4-DAY DOSING, 3 DAYS OFF THERAPY  (100 MG, QD)
     Route: 048
     Dates: start: 20120214, end: 20120412
  4. ZOLINZA CAPSULES 100MG [Suspect]
     Dosage: CHANGED TO TAKE IT DAILY, (100 MG, QD)
     Route: 048
     Dates: start: 20120413, end: 20120510
  5. ZOLINZA CAPSULES 100MG [Suspect]
     Dosage: 4-DAY DOSING, 3 DAYS OFF THERAPY (200 MG,QD)
     Route: 048
     Dates: start: 20120511, end: 20120607
  6. ZOLINZA CAPSULES 100MG [Suspect]
     Dosage: CHANGED TO TAKE IT DAILY, (200 MG,QD)
     Route: 048
     Dates: start: 20120608, end: 20120621
  7. ZOLINZA CAPSULES 100MG [Suspect]
     Dosage: DAILY ADMINISTRATION RESTARTED (200 MG, QD)
     Route: 048
     Dates: start: 20120629, end: 20130710
  8. ZOLINZA CAPSULES 100MG [Suspect]
     Dosage: 5-DAY DOSING, 2 DAYS OFF THERAPY; 300 MG DAILY
     Route: 048
     Dates: start: 20120711
  9. ZOLINZA CAPSULES 100MG [Suspect]
     Dosage: UNK

REACTIONS (4)
  - Renal impairment [Recovered/Resolved]
  - Renal impairment [Recovered/Resolved]
  - Renal impairment [Recovering/Resolving]
  - Liver disorder [Unknown]
